FAERS Safety Report 13593033 (Version 1)
Quarter: 2017Q2

REPORT INFORMATION
  Report Type: Spontaneous
  Country: US (occurrence: US)
  Receive Date: 20170530
  Receipt Date: 20170530
  Transmission Date: 20170830
  Serious: No
  Sender: FDA-Public Use
  Company Number: US-MYLANLABS-2017M1012734

PATIENT
  Age: 60 Year
  Sex: Female

DRUGS (1)
  1. ACYCLOVIR OINTMENT USP, 5% [Suspect]
     Active Substance: ACYCLOVIR
     Indication: HERPES ZOSTER
     Dosage: 5 %, APPLY TOPICALLY 5  XDAY FOR 4 DAYS
     Route: 061
     Dates: start: 20170223, end: 20170223

REACTIONS (3)
  - Application site pain [Not Recovered/Not Resolved]
  - Blister rupture [Not Recovered/Not Resolved]
  - Product physical consistency issue [Not Recovered/Not Resolved]

NARRATIVE: CASE EVENT DATE: 20170223
